FAERS Safety Report 25147000 (Version 1)
Quarter: 2025Q2

REPORT INFORMATION
  Report Type: Spontaneous
  Country: US (occurrence: US)
  Receive Date: 20250401
  Receipt Date: 20250401
  Transmission Date: 20250717
  Serious: Yes (Other)
  Sender: PTC THERAPEUTICS
  Company Number: US-PTC THERAPEUTICS INC.-US-2024PTC001654

PATIENT
  Sex: Male

DRUGS (1)
  1. EMFLAZA [Suspect]
     Active Substance: DEFLAZACORT
     Indication: Product used for unknown indication
     Route: 065

REACTIONS (2)
  - Pneumonia [Unknown]
  - COVID-19 [Unknown]
